FAERS Safety Report 10264588 (Version 1)
Quarter: 2014Q2

REPORT INFORMATION
  Report Type: Report from Study
  Country: US (occurrence: US)
  Receive Date: 20140627
  Receipt Date: 20140627
  Transmission Date: 20141212
  Serious: Yes (Hospitalization)
  Sender: FDA-Public Use
  Company Number: PHEH2014US012822

PATIENT
  Age: 16 Year
  Sex: Female
  Weight: 58.5 kg

DRUGS (8)
  1. TOBI PODHALER [Suspect]
     Indication: CYSTIC FIBROSIS
     Dosage: 112 MG, TWICE A DAY
     Route: 055
     Dates: start: 201402
  2. TOBI PODHALER [Suspect]
     Indication: ASTHMA
  3. PROVENTIL [Concomitant]
     Dosage: UNK
  4. AZITHROMYCIN [Concomitant]
     Dosage: UNK
  5. PULMOZYME [Concomitant]
     Dosage: UNK
  6. GUAIFENESIN [Concomitant]
     Dosage: UNK
  7. ULTRESA [Concomitant]
     Dosage: UNK
  8. MULTIVIT//VITAMINS NOS [Concomitant]
     Dosage: UNK

REACTIONS (1)
  - Pancreatitis [Recovered/Resolved]
